FAERS Safety Report 8423365-2 (Version None)
Quarter: 2012Q2

REPORT INFORMATION
  Report Type: 
  Country: None (occurrence: None)
  Receive Date: 20120608
  Receipt Date: 20120531
  Transmission Date: 20120825
  Serious: Yes (Hospitalization)
  Sender: FDA-Public Use
  Company Number: JP-BAXTER-2012BAX007096

PATIENT
  Sex: Female

DRUGS (7)
  1. THERARUBICIN                       /00963101/ [Suspect]
     Indication: NEUROBLASTOMA
     Route: 065
  2. TATHION [Concomitant]
     Route: 017
  3. CYCLOPHOSPHAMIDE [Suspect]
     Indication: NEUROBLASTOMA
     Route: 065
  4. RAPIACTA [Concomitant]
     Route: 041
     Dates: start: 20110325, end: 20110325
  5. ETOPOSIDE [Suspect]
     Indication: NEUROBLASTOMA
     Route: 065
  6. VALTREX [Concomitant]
     Route: 065
  7. CARBOPLATIN [Suspect]
     Indication: NEUROBLASTOMA
     Route: 065

REACTIONS (3)
  - ALANINE AMINOTRANSFERASE INCREASED [None]
  - ASPARTATE AMINOTRANSFERASE INCREASED [None]
  - WHITE BLOOD CELL COUNT DECREASED [None]
